FAERS Safety Report 17188899 (Version 3)
Quarter: 2020Q3

REPORT INFORMATION
  Report Type: Report from Study
  Country: None (occurrence: US)
  Receive Date: 20191222
  Receipt Date: 20200819
  Transmission Date: 20201102
  Serious: Yes (Hospitalization)
  Sender: FDA-Public Use
  Company Number: US-ABBVIE-19K-163-3009727-00

PATIENT
  Age: 58 Year
  Sex: Male

DRUGS (3)
  1. DUOPA [Suspect]
     Active Substance: CARBIDOPA\LEVODOPA
     Route: 050
     Dates: start: 2020
  2. RYTARY [Concomitant]
     Active Substance: CARBIDOPA\LEVODOPA
     Indication: PARKINSON^S DISEASE
  3. DUOPA [Suspect]
     Active Substance: CARBIDOPA\LEVODOPA
     Indication: PARKINSON^S DISEASE
     Route: 050
     Dates: start: 20190219, end: 201911

REACTIONS (9)
  - Device dislocation [Unknown]
  - Enteral nutrition [Not Recovered/Not Resolved]
  - Dysstasia [Unknown]
  - Hypophagia [Unknown]
  - Dysphagia [Not Recovered/Not Resolved]
  - Product use complaint [Unknown]
  - Intentional medical device removal by patient [Unknown]
  - Aspiration [Unknown]
  - Device leakage [Unknown]

NARRATIVE: CASE EVENT DATE: 2019
